FAERS Safety Report 6562384-8 (Version None)
Quarter: 2010Q1

REPORT INFORMATION
  Report Type: 
  Country: None (occurrence: None)
  Receive Date: 20100130
  Receipt Date: 20091110
  Transmission Date: 20100710
  Serious: No
  Sender: FDA-Public Use
  Company Number: US-ABBOTT-09P-163-0608019-00

PATIENT
  Sex: Male

DRUGS (4)
  1. HUMIRA [Suspect]
     Indication: PSORIASIS
     Dates: start: 20090828
  2. VYTORIN [Concomitant]
     Indication: HYPERTENSION
  3. UNKNOWN BLOOD PRESSURE MEDICATION [Concomitant]
     Indication: HYPERTENSION
  4. CLOBETASOL PROPIONATE [Concomitant]
     Indication: PSORIASIS

REACTIONS (1)
  - STAPHYLOCOCCAL SKIN INFECTION [None]
